FAERS Safety Report 12386560 (Version 1)
Quarter: 2016Q2

REPORT INFORMATION
  Report Type: Spontaneous
  Country: US (occurrence: US)
  Receive Date: 20160519
  Receipt Date: 20160519
  Transmission Date: 20160815
  Serious: Yes (Hospitalization)
  Sender: FDA-Public Use
  Company Number: US-DEPOMED, INC.-US-2016DEP009634

PATIENT
  Age: 56 Year
  Sex: Male

DRUGS (10)
  1. FENTANYL. [Suspect]
     Active Substance: FENTANYL
     Dosage: INCREASED BY 25MCG EVERY 3-5 DAYS TO A TOAL OF 75MCG/HR, PATCH
     Route: 062
  2. HYDROMORPHONE [Suspect]
     Active Substance: HYDROMORPHONE
     Dosage: 12 MG, UNK
     Route: 048
  3. MORPHINE [Suspect]
     Active Substance: MORPHINE
     Indication: POSTOPERATIVE ANALGESIA
     Dosage: 30 MG, UNK, PCA
  4. FENTANYL. [Suspect]
     Active Substance: FENTANYL
     Dosage: 12 MCG/HR FOR 72 HOURS, PATCH
     Route: 062
  5. FENTANYL. [Suspect]
     Active Substance: FENTANYL
     Dosage: 75 MCG/72 HOURS, PATCH
     Route: 062
  6. FENTANYL. [Suspect]
     Active Substance: FENTANYL
     Dosage: 12 MCG/HOUR, TOTAL 24 HOUR DOSE =288 ?G, PATCH
     Route: 062
  7. NORCO [Concomitant]
     Active Substance: ACETAMINOPHEN\HYDROCODONE BITARTRATE
     Indication: PRODUCT USED FOR UNKNOWN INDICATION
     Dosage: 10/325, 6-7/DAY
     Route: 048
  8. FENTANYL. [Suspect]
     Active Substance: FENTANYL
     Indication: POSTOPERATIVE ANALGESIA
     Dosage: 500 MCG, UNK
     Route: 042
  9. HYDROMORPHONE [Suspect]
     Active Substance: HYDROMORPHONE
     Indication: POSTOPERATIVE ANALGESIA
     Dosage: 30 MG, UNK, PCA
     Route: 042
  10. MORPHINE [Suspect]
     Active Substance: MORPHINE
     Dosage: ER, 60 MG, QID
     Route: 048

REACTIONS (3)
  - Hyperaesthesia [Recovered/Resolved]
  - Amputation stump pain [Recovering/Resolving]
  - Phantom pain [Recovered/Resolved]
